FAERS Safety Report 6975093-8 (Version None)
Quarter: 2010Q3

REPORT INFORMATION
  Report Type: 
  Country: None (occurrence: None)
  Receive Date: 20100910
  Receipt Date: 20090126
  Transmission Date: 20110219
  Serious: No
  Sender: FDA-Public Use
  Company Number: US-WYE-H07922409

PATIENT
  Age: 69 Year
  Sex: Male

DRUGS (7)
  1. PRISTIQ [Suspect]
     Indication: DEPRESSION
     Route: 048
     Dates: start: 20090124
  2. PRAVACHOL [Concomitant]
  3. RITALIN [Concomitant]
  4. VITAMIN B-12 [Concomitant]
  5. ASPIRIN [Concomitant]
  6. WELLBUTRIN XL [Concomitant]
  7. DYAZIDE [Concomitant]

REACTIONS (2)
  - DIARRHOEA [None]
  - DIZZINESS [None]
